FAERS Safety Report 8154775-9 (Version None)
Quarter: 2012Q1

REPORT INFORMATION
  Report Type: 
  Country: None (occurrence: None)
  Receive Date: 20120221
  Receipt Date: 20120210
  Transmission Date: 20120608
  Serious: Yes (Hospitalization)
  Sender: FDA-Public Use
  Company Number: PHEH2012US003640

PATIENT
  Sex: Female

DRUGS (1)
  1. MYFORTIC [Suspect]
     Indication: LIVER TRANSPLANT
     Dosage: UNK UKN, UNK
     Dates: start: 20020101

REACTIONS (5)
  - CONVULSION [None]
  - SKIN INJURY [None]
  - CONCUSSION [None]
  - HEAD INJURY [None]
  - FALL [None]
